FAERS Safety Report 7008398-5 (Version None)
Quarter: 2010Q3

REPORT INFORMATION
  Report Type: 
  Country: None (occurrence: None)
  Receive Date: 20100922
  Receipt Date: 20100914
  Transmission Date: 20110219
  Serious: Yes (Other)
  Sender: FDA-Public Use
  Company Number: B0674037A

PATIENT
  Age: 38 Year
  Sex: Female
  Weight: 84 kg

DRUGS (3)
  1. AROPAX [Suspect]
     Indication: ANXIETY
     Dosage: 20MG PER DAY
     Route: 065
     Dates: start: 20100528, end: 20100601
  2. HERBAL MEDICATION [Concomitant]
     Indication: FEELING OF RELAXATION
  3. PROGESTERONE [Concomitant]

REACTIONS (5)
  - AGITATION [None]
  - ANXIETY [None]
  - DIARRHOEA [None]
  - NAUSEA [None]
  - SUICIDAL IDEATION [None]
